FAERS Safety Report 5690221-2 (Version None)
Quarter: 2008Q1

REPORT INFORMATION
  Report Type: 
  Country: None (occurrence: None)
  Receive Date: 20080331
  Receipt Date: 20080331
  Transmission Date: 20080703
  Serious: Yes (Other)
  Sender: FDA-Public Use
  Company Number: None

PATIENT
  Age: 2 Year
  Sex: Female
  Weight: 36.2878 kg

DRUGS (1)
  1. SINGULAIR [Suspect]
     Indication: ASTHMA
     Dosage: 10 MG. ONCE A DAY PO
     Route: 048
     Dates: start: 20020901, end: 20051101

REACTIONS (7)
  - ABNORMAL DREAMS [None]
  - ANXIETY [None]
  - GASTRIC DISORDER [None]
  - HALLUCINATION [None]
  - IMPAIRED GASTRIC EMPTYING [None]
  - MOOD SWINGS [None]
  - NIGHTMARE [None]
